FAERS Safety Report 15030659 (Version 1)
Quarter: 2018Q2

REPORT INFORMATION
  Report Type: Spontaneous
  Country: US (occurrence: US)
  Receive Date: 20180619
  Receipt Date: 20180619
  Transmission Date: 20180711
  Serious: Yes (Death)
  Sender: FDA-Public Use
  Company Number: US-PFIZER INC-2018247241

PATIENT
  Age: 71 Year
  Sex: Male
  Weight: 54.43 kg

DRUGS (1)
  1. RAPAMUNE [Suspect]
     Active Substance: SIROLIMUS
     Indication: LIVER TRANSPLANT
     Dosage: 2 DF, DAILY

REACTIONS (5)
  - Product use in unapproved indication [Unknown]
  - Metastases to central nervous system [Fatal]
  - Metastases to liver [Fatal]
  - Lung neoplasm malignant [Fatal]
  - Metastases to bone [Fatal]
